FAERS Safety Report 8196994-1 (Version None)
Quarter: 2012Q1

REPORT INFORMATION
  Report Type: 
  Country: None (occurrence: None)
  Receive Date: 20120309
  Receipt Date: 20120301
  Transmission Date: 20120608
  Serious: Yes (Hospitalization)
  Sender: FDA-Public Use
  Company Number: ZA-ABBOTT-12P-143-0910440-02

PATIENT
  Sex: Male

DRUGS (7)
  1. METHOTREXATE [Concomitant]
     Indication: CROHN'S DISEASE
     Dates: start: 20110513, end: 20110729
  2. PROCHLORPERAZINE [Concomitant]
     Indication: NAUSEA
     Dates: start: 20100311
  3. ZOLPIDEM [Concomitant]
     Indication: INSOMNIA
     Dates: start: 20100311
  4. HUMIRA [Suspect]
     Indication: CROHN'S DISEASE
     Route: 058
     Dates: end: 20100226
  5. FLAGYL [Concomitant]
     Indication: CROHN'S DISEASE
     Dates: start: 20100310
  6. CIPROFLOXACIN [Concomitant]
     Indication: CROHN'S DISEASE
     Dates: start: 20100310
  7. METHOTREXATE [Concomitant]
     Dates: start: 20110730

REACTIONS (1)
  - ILEOSTOMY CLOSURE [None]
